FAERS Safety Report 23239031 (Version 1)
Quarter: 2023Q4

REPORT INFORMATION
  Report Type: Spontaneous
  Country: CA (occurrence: CA)
  Receive Date: 20231129
  Receipt Date: 20231129
  Transmission Date: 20240110
  Serious: Yes (Congenital Anomaly, Other)
  Sender: FDA-Public Use
  Company Number: CA-SA-2023SA365095

PATIENT

DRUGS (7)
  1. DUPILUMAB [Suspect]
     Active Substance: DUPILUMAB
     Indication: Product used for unknown indication
     Dosage: UNK
     Route: 064
  2. FLUTICASONE FUROATE [Suspect]
     Active Substance: FLUTICASONE FUROATE
     Indication: Product used for unknown indication
     Dosage: UNK
     Route: 064
  3. PREDNISONE [Suspect]
     Active Substance: PREDNISONE
     Indication: Product use in unapproved indication
     Dosage: 20 MG, QD
     Route: 064
  4. MIRTAZAPINE [Suspect]
     Active Substance: MIRTAZAPINE
     Indication: Product use in unapproved indication
     Dosage: UNK
     Route: 064
  5. OMALIZUMAB [Suspect]
     Active Substance: OMALIZUMAB
     Indication: Product use in unapproved indication
     Dosage: UNK
     Route: 064
  6. TIOTROPIUM [Suspect]
     Active Substance: TIOTROPIUM
     Indication: Product use in unapproved indication
     Route: 064
  7. VILANTEROL [Suspect]
     Active Substance: VILANTEROL
     Indication: Product use in unapproved indication
     Route: 064

REACTIONS (7)
  - Cleft palate [Unknown]
  - Hypopituitarism [Unknown]
  - Laryngomalacia [Unknown]
  - Pituitary stalk interruption syndrome [Unknown]
  - Premature baby [Unknown]
  - Secondary hypogonadism [Unknown]
  - Foetal exposure during pregnancy [Unknown]
